FAERS Safety Report 23192024 (Version 1)
Quarter: 2023Q4

REPORT INFORMATION
  Report Type: Spontaneous
  Country: US (occurrence: US)
  Receive Date: 20231116
  Receipt Date: 20231116
  Transmission Date: 20240110
  Serious: Yes (Other)
  Sender: FDA-Public Use
  Company Number: US-SA-SAC20231115000284

PATIENT
  Age: 60 Year
  Sex: Female
  Weight: 72 kg

DRUGS (8)
  1. DUPIXENT [Suspect]
     Active Substance: DUPILUMAB
     Indication: Dermatitis atopic
     Dosage: 300 MG, QOW
     Route: 058
  2. ELIQUIS [Concomitant]
     Active Substance: APIXABAN
     Dosage: UNK
  3. PRAVASTATIN SODIUM [Concomitant]
     Active Substance: PRAVASTATIN SODIUM
     Dosage: UNK
  4. ASCORBIC ACID;COLLAGEN [Concomitant]
     Dosage: UNK
  5. VITAMINS [Concomitant]
     Active Substance: VITAMINS
     Dosage: UNK
  6. FLUOCINOLONE ACETONIDE [Concomitant]
     Active Substance: FLUOCINOLONE ACETONIDE
     Dosage: UNK
  7. OMEPRAZOLE [Concomitant]
     Active Substance: OMEPRAZOLE
     Dosage: UNK
  8. LISINOPRIL [Concomitant]
     Active Substance: LISINOPRIL
     Dosage: UNK

REACTIONS (2)
  - Psoriatic arthropathy [Unknown]
  - Pain [Unknown]

NARRATIVE: CASE EVENT DATE: 20220101
